FAERS Safety Report 17659361 (Version 3)
Quarter: 2020Q2

REPORT INFORMATION
  Report Type: Report from Study
  Country: US (occurrence: US)
  Receive Date: 20200413
  Receipt Date: 20200518
  Transmission Date: 20200713
  Serious: Yes (Death, Other)
  Sender: FDA-Public Use
  Company Number: US-SA-2020SA091169

PATIENT
  Age: 70 Year
  Sex: Male

DRUGS (27)
  1. FAMOTIDINE. [Concomitant]
     Active Substance: FAMOTIDINE
     Indication: PROPHYLAXIS AGAINST GASTROINTESTINAL ULCER
     Dosage: 20 MG, STAT
     Route: 042
     Dates: start: 20200326, end: 20200330
  2. HYDROXYCHLOROQUINE [Concomitant]
     Active Substance: HYDROXYCHLOROQUINE
     Indication: CORONAVIRUS INFECTION
     Dosage: 400 MG, BID
     Route: 048
     Dates: start: 20200326, end: 20200330
  3. MIDAZOLAM. [Concomitant]
     Active Substance: MIDAZOLAM
     Indication: SEDATION
     Dosage: 2 MG, STAT
     Route: 042
     Dates: start: 20200326, end: 20200326
  4. EPINEPHRINE. [Concomitant]
     Active Substance: EPINEPHRINE
     Indication: HYPOTENSION
     Dosage: 4 MG, INFUSION
     Route: 042
     Dates: start: 20200327, end: 20200330
  5. METOLAZONE. [Concomitant]
     Active Substance: METOLAZONE
     Indication: ACUTE KIDNEY INJURY
     Dosage: 5 MG, STAT
     Route: 042
     Dates: start: 20200326, end: 20200326
  6. CALCIUM GLUCONATE. [Concomitant]
     Active Substance: CALCIUM GLUCONATE
     Dosage: 1 G, STAT
     Route: 042
     Dates: start: 20200328, end: 20200328
  7. BUMETANIDE. [Concomitant]
     Active Substance: BUMETANIDE
     Indication: ACUTE KIDNEY INJURY
     Dosage: 4 MG, AS NECESSARY
     Route: 042
     Dates: start: 20200326, end: 20200326
  8. CALCIUM GLUCONATE. [Concomitant]
     Active Substance: CALCIUM GLUCONATE
     Indication: HYPOCALCAEMIA
     Dosage: 1 G, STAT
     Route: 042
     Dates: start: 20200327, end: 20200327
  9. SODIUM BICARBONATE BRAUN 8,4% [Concomitant]
     Indication: METABOLIC ACIDOSIS
     Dosage: 50 MEQ, STAT
     Route: 042
     Dates: start: 20200326, end: 20200327
  10. DEXMEDETOMIDINE. [Concomitant]
     Active Substance: DEXMEDETOMIDINE
     Indication: SEDATION
     Dosage: 1000 ?G, INFUSION
     Route: 042
     Dates: start: 20200327, end: 20200330
  11. CEFEPIME [Concomitant]
     Active Substance: CEFEPIME HYDROCHLORIDE
     Indication: PNEUMONIA
     Dosage: 1 G, BID
     Route: 042
     Dates: start: 20200326, end: 20200330
  12. INSULIN LISPRO [Concomitant]
     Active Substance: INSULIN LISPRO
     Indication: BLOOD GLUCOSE INCREASED
     Dosage: VARYING IU, Q6H, AS NEEDED
     Route: 058
     Dates: start: 20200327, end: 20200330
  13. LACTATED RINGERS SOLUTION [Concomitant]
     Active Substance: CALCIUM CHLORIDE\POTASSIUM CHLORIDE\SODIUM CHLORIDE\SODIUM LACTATE
     Indication: ELECTROLYTE IMBALANCE
     Dosage: 1000 ML, BOLUS
     Route: 042
     Dates: start: 20200327, end: 20200327
  14. CEFTRIAXONE. [Concomitant]
     Active Substance: CEFTRIAXONE
     Indication: PNEUMONIA
     Dosage: 1 G, STAT
     Route: 042
     Dates: start: 20200326, end: 20200326
  15. HEPARIN [Concomitant]
     Active Substance: HEPARIN SODIUM
     Indication: EMBOLISM VENOUS
     Dosage: 5000 IU, QID
     Dates: start: 20200326, end: 20200327
  16. PIPERACILLIN AND TAZOBACTAM [Concomitant]
     Active Substance: PIPERACILLIN SODIUM\TAZOBACTAM SODIUM
     Indication: PNEUMONIA
     Dosage: 3.375 MG, STAT
     Route: 042
     Dates: start: 20200326, end: 20200326
  17. DOBUTAMINE [Concomitant]
     Active Substance: DOBUTAMINE HYDROCHLORIDE
     Indication: HYPOTENSION
     Dosage: 500 MG, INFUSION
     Route: 042
     Dates: start: 20200327, end: 20200329
  18. FENTANYL. [Concomitant]
     Active Substance: FENTANYL
     Indication: SEDATION
     Dosage: 1500 MCG, INTERMITTENT
     Route: 042
     Dates: start: 20200326, end: 20200330
  19. FRUSEMIDE [FUROSEMIDE] [Concomitant]
     Active Substance: FUROSEMIDE
     Indication: ACUTE KIDNEY INJURY
     Dosage: 80 MG, STAT
     Route: 042
     Dates: start: 20200326, end: 20200326
  20. SENNA TIME S [Concomitant]
     Active Substance: DOCUSATE SODIUM\SENNOSIDES A AND B
     Indication: CONSTIPATION
     Dosage: 2 DF, BID
     Route: 048
     Dates: start: 20200327, end: 20200330
  21. LACRI-LUBE [Concomitant]
     Indication: EYE LUBRICATION THERAPY
     Dosage: 1 APPLICATION, BID
     Route: 047
     Dates: start: 20200326, end: 20200330
  22. EPOPROSTENOL. [Concomitant]
     Active Substance: EPOPROSTENOL
     Indication: ACUTE RESPIRATORY DISTRESS SYNDROME
     Dosage: 100 ?G, AS NECESSARY
     Route: 042
     Dates: start: 20200326, end: 20200330
  23. MAGNESIUM SULFATE. [Concomitant]
     Active Substance: MAGNESIUM SULFATE
     Indication: HYPOMAGNESAEMIA
     Dosage: 2 G, STAT
     Dates: start: 20200328, end: 20200328
  24. SARILUMAB [Suspect]
     Active Substance: SARILUMAB
     Indication: CORONAVIRUS INFECTION
     Dosage: 400 MG, 1X
     Route: 042
     Dates: start: 20200327, end: 20200327
  25. AZITHROMYCIN ANHYDROUS. [Concomitant]
     Active Substance: AZITHROMYCIN ANHYDROUS
     Indication: PNEUMONIA
     Dosage: 500 MG, UNK
     Route: 042
     Dates: start: 20200326, end: 20200330
  26. VANCOMYCIN [Concomitant]
     Active Substance: VANCOMYCIN
     Indication: PNEUMONIA
     Dosage: 1 G, QD
     Route: 042
     Dates: start: 20200326, end: 20200328
  27. POTASSIUM CHLORIDE. [Concomitant]
     Active Substance: POTASSIUM CHLORIDE
     Indication: HYPOKALAEMIA
     Dosage: UNK

REACTIONS (4)
  - Aspartate aminotransferase increased [Not Recovered/Not Resolved]
  - Atrial fibrillation [Recovered/Resolved]
  - Respiratory failure [Fatal]
  - Acute respiratory failure [Fatal]

NARRATIVE: CASE EVENT DATE: 20200326
